FAERS Safety Report 22217679 (Version 1)
Quarter: 2023Q2

REPORT INFORMATION
  Report Type: Spontaneous
  Country: US (occurrence: None)
  Receive Date: 20230414
  Receipt Date: 20230414
  Transmission Date: 20230722
  Serious: No
  Sender: FDA-Public Use
  Company Number: None

PATIENT
  Age: 64 Year
  Sex: Female
  Weight: 41.35 kg

DRUGS (3)
  1. AIMOVIG [Suspect]
     Active Substance: ERENUMAB-AOOE
     Indication: Migraine
     Dosage: OTHER QUANTITY : 1 INJECTION;?OTHER FREQUENCY : OTHER;?OTHER ROUTE : GIVEN UNDER THE SKIN;?
     Route: 050
     Dates: start: 20230329, end: 20230329
  2. NURTEC [Concomitant]
  3. HERDAL REMDIES [Concomitant]

REACTIONS (1)
  - Madarosis [None]

NARRATIVE: CASE EVENT DATE: 20230414
